FAERS Safety Report 8948158 (Version 1)
Quarter: 2012Q4

REPORT INFORMATION
  Report Type: Spontaneous
  Country: IT (occurrence: None)
  Receive Date: 20121126
  Receipt Date: 20121126
  Transmission Date: 20130627
  Serious: Yes (Other)
  Sender: FDA-Public Use
  Company Number: 1496666

PATIENT
  Sex: Male

DRUGS (4)
  1. METHOTREXATE [Suspect]
     Indication: OSTEOSARCOMA
  2. CISPLATIN [Suspect]
     Indication: OSTEOSARCOMA
  3. DOXORUBICIN [Suspect]
     Indication: OSTEOSARCOMA
     Route: 041
  4. IFOSFAMIDE [Suspect]
     Indication: OSTEOSARCOMA

REACTIONS (1)
  - Salivary gland cancer [None]
